FAERS Safety Report 10098095 (Version 1)
Quarter: 2014Q2

REPORT INFORMATION
  Report Type: Spontaneous
  Country: GB (occurrence: None)
  Receive Date: 20140421
  Receipt Date: 20140421
  Transmission Date: 20141212
  Serious: Yes (Other)
  Sender: FDA-Public Use
  Company Number: AUR-APL-2014-04598

PATIENT
  Sex: Male

DRUGS (5)
  1. TAMSULOSIN (TAMSULOSIN) [Suspect]
     Indication: NEPHROLITHIASIS
     Dates: start: 201308, end: 201401
  2. CODEINE (CODEINE) [Concomitant]
  3. IBUPROFEN (IBUPROFEN) [Concomitant]
  4. PARACETAMOL (PARACETAMOL) [Concomitant]
  5. TRAMADOL (TRAMADOL) [Concomitant]

REACTIONS (3)
  - Off label use [None]
  - Ejaculation failure [None]
  - Nephrolithiasis [None]
